FAERS Safety Report 6599394-0 (Version None)
Quarter: 2010Q1

REPORT INFORMATION
  Report Type: 
  Country: None (occurrence: None)
  Receive Date: 20100216
  Receipt Date: 20100204
  Transmission Date: 20100710
  Serious: Yes (Hospitalization)
  Sender: FDA-Public Use
  Company Number: WAES 1002USA01519

PATIENT
  Age: 84 Year
  Sex: Male

DRUGS (8)
  1. COZAAR [Suspect]
     Dosage: 1 CAP/DAILY PO
     Route: 048
     Dates: start: 20090529, end: 20090911
  2. LASIX [Suspect]
     Dosage: 1 CAP/DAILY PO
     Route: 048
     Dates: start: 20061226, end: 20090911
  3. CAP LUVION (CANRENONE) (CANRENONE) [Suspect]
     Dosage: 1 CAP/DAILY PO
     Route: 048
     Dates: start: 20061228, end: 20090911
  4. DAPAROX [Concomitant]
  5. FRAXIPARINE [Concomitant]
  6. BLINDED THERAPY [Concomitant]
  7. CARVEDILOL [Concomitant]
  8. PLACEBO [Concomitant]

REACTIONS (2)
  - ASTHENIA [None]
  - ORTHOSTATIC HYPOTENSION [None]
